FAERS Safety Report 13093794 (Version 1)
Quarter: 2017Q1

REPORT INFORMATION
  Report Type: Report from Study
  Country: None (occurrence: AU)
  Receive Date: 20170106
  Receipt Date: 20170106
  Transmission Date: 20170428
  Serious: Yes (Death)
  Sender: FDA-Public Use
  Company Number: AU-ABBVIE-17K-008-1830098-00

PATIENT
  Age: 83 Year
  Sex: Male
  Weight: 70 kg

DRUGS (1)
  1. DUODOPA [Suspect]
     Active Substance: CARBIDOPA\LEVODOPA
     Indication: PARKINSON^S DISEASE
     Dosage: MD 18 CD (0600-2200), 5.7 (2200-0600), ED 4ML
     Route: 050
     Dates: start: 20141103

REACTIONS (2)
  - Cerebrovascular accident [Fatal]
  - Unevaluable event [Fatal]

NARRATIVE: CASE EVENT DATE: 20170102
